FAERS Safety Report 25123031 (Version 1)
Quarter: 2025Q1

REPORT INFORMATION
  Report Type: Spontaneous
  Country: GB (occurrence: GB)
  Receive Date: 20250326
  Receipt Date: 20250326
  Transmission Date: 20250409
  Serious: Yes (Other)
  Sender: TEVA
  Company Number: GB-MHRA-TPP22606455C22704430YC1742238785973

PATIENT
  Age: 81 Year
  Sex: Male
  Weight: 84 kg

DRUGS (22)
  1. OMEPRAZOLE [Suspect]
     Active Substance: OMEPRAZOLE
     Indication: Ill-defined disorder
     Dosage: TAKE ONE TWICE A DAY
     Route: 065
     Dates: start: 20230628, end: 20250106
  2. FINASTERIDE [Concomitant]
     Active Substance: FINASTERIDE
     Indication: Ill-defined disorder
     Route: 065
     Dates: start: 20230628
  3. SENNA [Concomitant]
     Active Substance: SENNOSIDES
     Indication: Ill-defined disorder
     Dosage: ONE OR TWO  TABLETS AT NIGHT, AS REQUIRED, TO P...
     Route: 065
     Dates: start: 20240806
  4. ROTIGOTINE [Concomitant]
     Active Substance: ROTIGOTINE
     Indication: Ill-defined disorder
     Dosage: APPLY ONCE DAILY, AS PER NEUROLOGIST
     Route: 065
     Dates: start: 20241204
  5. DICLOFENAC SODIUM [Concomitant]
     Active Substance: DICLOFENAC SODIUM
     Indication: Ill-defined disorder
     Route: 065
     Dates: start: 20250214, end: 20250228
  6. ATORVASTATIN [Concomitant]
     Active Substance: ATORVASTATIN
     Indication: Ill-defined disorder
     Dosage: ONE TO BE TAKEN DAILY TO LOWER CHOLESTEROL
     Dates: start: 20230628
  7. LAMOTRIGINE [Concomitant]
     Active Substance: LAMOTRIGINE
     Indication: Ill-defined disorder
     Dosage: ONE TABLET TWICE DAILY, TO CONTROL EPILEPSY
     Route: 065
     Dates: start: 20250121
  8. FOSFOMYCIN [Concomitant]
     Active Substance: FOSFOMYCIN
     Indication: Ill-defined disorder
     Route: 065
     Dates: start: 20250207, end: 20250210
  9. ALGINATE [Concomitant]
     Indication: Ill-defined disorder
     Dosage: 10ML-20ML UP TO 4 TIMES/DAY
     Route: 065
     Dates: start: 20250317
  10. DORZOLAMIDE [Concomitant]
     Active Substance: DORZOLAMIDE
     Indication: Ill-defined disorder
     Dosage: ONE DROP TWICE DAILY
     Route: 065
     Dates: start: 20240624
  11. MINERAL OIL\PARAFFIN [Concomitant]
     Active Substance: MINERAL OIL\PARAFFIN
     Indication: Ill-defined disorder
     Route: 065
     Dates: start: 20250207, end: 20250307
  12. DAPAGLIFLOZIN [Concomitant]
     Active Substance: DAPAGLIFLOZIN
     Indication: Ill-defined disorder
     Dosage: TAKE ONE DAILY
     Route: 065
     Dates: start: 20230831
  13. TAMSULOSIN HYDROCHLORIDE [Concomitant]
     Active Substance: TAMSULOSIN HYDROCHLORIDE
     Indication: Ill-defined disorder
     Dosage: TAKE ONE CAPSULE ONCE A DAY
     Route: 065
     Dates: start: 20240806
  14. FERROUS FUMARATE [Concomitant]
     Active Substance: FERROUS FUMARATE
     Indication: Ill-defined disorder
     Route: 065
     Dates: start: 20241224
  15. CARVEDILOL [Concomitant]
     Active Substance: CARVEDILOL
     Indication: Ill-defined disorder
     Dosage: 1 TABLET AT NIGHT
     Route: 065
     Dates: start: 20230628
  16. BUMETANIDE [Concomitant]
     Active Substance: BUMETANIDE
     Indication: Ill-defined disorder
     Dosage: ONE TABLETS IN THE MORNING
     Route: 065
     Dates: start: 20230628
  17. ALLOPURINOL [Concomitant]
     Active Substance: ALLOPURINOL
     Indication: Ill-defined disorder
     Dosage: ONE TO BE TAKEN EVERY DAY
     Route: 065
     Dates: start: 20230628
  18. ACETAMINOPHEN [Concomitant]
     Active Substance: ACETAMINOPHEN
     Indication: Ill-defined disorder
     Dosage: TWO TABLETS UPTO FOUR TIMES DAILY FOR PAIN
     Route: 065
     Dates: start: 20230628
  19. RIVAROXABAN [Concomitant]
     Active Substance: RIVAROXABAN
     Indication: Ill-defined disorder
     Dosage: ONE TABLET ONCE DAILY (WITH LARGEST MEAL OF THE...
     Route: 065
     Dates: start: 20240214
  20. LATANOPROST [Concomitant]
     Active Substance: LATANOPROST
     Indication: Ill-defined disorder
     Dosage: ONE DROP INTO EACH EYE AT NIGHT, FOR GLAUCOMA
     Route: 065
     Dates: start: 20230628
  21. GABAPENTIN [Concomitant]
     Active Substance: GABAPENTIN
     Indication: Ill-defined disorder
     Route: 065
     Dates: start: 20240507
  22. AMITRIPTYLINE HYDROCHLORIDE [Concomitant]
     Active Substance: AMITRIPTYLINE HYDROCHLORIDE
     Indication: Ill-defined disorder
     Dosage: TAKE ONE AT NIGHT FOR PAIN
     Route: 065
     Dates: start: 20241014

REACTIONS (2)
  - Blood magnesium decreased [Unknown]
  - Seizure [Recovered/Resolved]

NARRATIVE: CASE EVENT DATE: 20250106
